FAERS Safety Report 5806498-6 (Version None)
Quarter: 2008Q3

REPORT INFORMATION
  Report Type: 
  Country: None (occurrence: None)
  Receive Date: 20080710
  Receipt Date: 20080625
  Transmission Date: 20090109
  Serious: Yes (Hospitalization)
  Sender: FDA-Public Use
  Company Number: JP-PFIZER INC-2008049304

PATIENT
  Sex: Male

DRUGS (10)
  1. MIGLITOL TABLET [Suspect]
     Indication: DIABETES MELLITUS
     Dosage: DAILY DOSE:150MG
     Route: 048
     Dates: start: 20071228, end: 20080508
  2. CHLORMADINONE ACETATE TAB [Suspect]
     Indication: BENIGN PROSTATIC HYPERPLASIA
     Dosage: DAILY DOSE:50MG
     Route: 048
     Dates: start: 20080214, end: 20080508
  3. URINARY ANTISEPTICS AND ANTIINFECTIVES [Suspect]
     Indication: URINARY TRACT INFECTION
  4. ANTIBIOTICS [Suspect]
     Indication: URINARY TRACT INFECTION
  5. METFORMIN HCL [Concomitant]
     Indication: DIABETES MELLITUS
     Route: 048
  6. EUGLUCON [Concomitant]
     Indication: DIABETES MELLITUS
     Route: 048
  7. FAMOTIDINE [Concomitant]
     Indication: GASTRITIS
     Route: 048
     Dates: start: 20070416, end: 20080508
  8. ASPIRIN [Concomitant]
     Indication: CAROTID ARTERY STENOSIS
     Route: 048
     Dates: start: 20070709, end: 20080508
  9. FLIVAS [Concomitant]
     Indication: BENIGN PROSTATIC HYPERPLASIA
     Dates: start: 20030101
  10. TAMSULOSIN HCL [Concomitant]

REACTIONS (3)
  - JAUNDICE [None]
  - LIVER DISORDER [None]
  - PRURITUS [None]
